FAERS Safety Report 8936657 (Version 2)
Quarter: 2012Q4

REPORT INFORMATION
  Report Type: 
  Country: CR (occurrence: CR)
  Receive Date: 20121130
  Receipt Date: 20121206
  Transmission Date: 20130627
  Serious: Yes (Death)
  Sender: FDA-Public Use
  Company Number: CR-ROCHE-1162142

PATIENT
  Sex: Female

DRUGS (1)
  1. HERCEPTIN [Suspect]
     Indication: BREAST CANCER
     Route: 065

REACTIONS (2)
  - Cardiac failure congestive [Fatal]
  - Pulmonary embolism [Fatal]
